FAERS Safety Report 6082178-X (Version None)
Quarter: 2009Q1

REPORT INFORMATION
  Report Type: 
  Country: None (occurrence: None)
  Receive Date: 20090218
  Receipt Date: 20090212
  Transmission Date: 20090719
  Serious: Yes (Other)
  Sender: FDA-Public Use
  Company Number: A0768202A

PATIENT
  Age: 42 Year
  Sex: Male

DRUGS (2)
  1. VALTREX [Suspect]
     Indication: DRUG USE FOR UNKNOWN INDICATION
     Dosage: 500MG PER DAY
     Route: 048
  2. UNKNOWN [Concomitant]

REACTIONS (3)
  - BLOOD CREATININE ABNORMAL [None]
  - GLOMERULAR FILTRATION RATE ABNORMAL [None]
  - RENAL FAILURE CHRONIC [None]
